FAERS Safety Report 8551528-4 (Version None)
Quarter: 2012Q3

REPORT INFORMATION
  Report Type: 
  Country: None (occurrence: None)
  Receive Date: 20120730
  Receipt Date: 20120719
  Transmission Date: 20120928
  Serious: Yes (Hospitalization, Disabling, Other)
  Sender: FDA-Public Use
  Company Number: US-009507513-0805USA00737

PATIENT

DRUGS (5)
  1. FOSAMAX [Suspect]
     Dosage: 35 MG, QW
     Route: 048
     Dates: start: 20050224
  2. SYNTHROID [Concomitant]
     Indication: THYROID DISORDER
     Dosage: 1.25 MG, UNK
     Route: 048
     Dates: start: 19700101, end: 20050101
  3. ZOLOFT [Concomitant]
     Indication: DEPRESSION
     Dates: start: 20040101
  4. FOSAMAX [Suspect]
     Indication: OSTEOPOROSIS PROPHYLAXIS
     Dosage: 35 MG, UNK
     Route: 048
     Dates: start: 20040101, end: 20050801
  5. THERAPY UNSPECIFIED [Concomitant]
     Indication: HYPERTENSION
     Dates: start: 19960101

REACTIONS (44)
  - CHEST PAIN [None]
  - BONE LOSS [None]
  - HYPERTENSION [None]
  - HYPERLIPIDAEMIA [None]
  - OSTEOARTHRITIS [None]
  - HYPERPLASIA [None]
  - CONJUNCTIVITIS ALLERGIC [None]
  - MOUTH HAEMORRHAGE [None]
  - SYNCOPE [None]
  - BLOOD CHOLESTEROL INCREASED [None]
  - ONYCHOMYCOSIS [None]
  - HEPATIC ENZYME INCREASED [None]
  - JOINT SWELLING [None]
  - GOUT [None]
  - OSTEONECROSIS OF JAW [None]
  - DEPRESSION [None]
  - HEPATIC STEATOSIS [None]
  - ASTHENIA [None]
  - GINGIVAL HYPERPLASIA [None]
  - SWELLING [None]
  - TOOTHACHE [None]
  - ELECTROCARDIOGRAM ABNORMAL [None]
  - DEAFNESS [None]
  - THYROID OPERATION [None]
  - ANXIETY [None]
  - PAIN IN EXTREMITY [None]
  - GINGIVAL BLEEDING [None]
  - PAIN [None]
  - URINARY TRACT INFECTION [None]
  - INJURY [None]
  - HYPERCALCAEMIA [None]
  - GINGIVAL SWELLING [None]
  - TOOTH DISORDER [None]
  - ADVERSE DRUG REACTION [None]
  - VISION BLURRED [None]
  - DYSPNOEA EXERTIONAL [None]
  - WEIGHT INCREASED [None]
  - TINEA PEDIS [None]
  - HYPERPARATHYROIDISM [None]
  - TRANSAMINASES INCREASED [None]
  - VITAMIN D DECREASED [None]
  - MALAISE [None]
  - CONSTIPATION [None]
  - DIZZINESS [None]
